FAERS Safety Report 6530456-X (Version None)
Quarter: 2010Q1

REPORT INFORMATION
  Report Type: 
  Country: None (occurrence: None)
  Receive Date: 20100106
  Receipt Date: 20100106
  Transmission Date: 20100710
  Serious: Yes (Hospitalization)
  Sender: FDA-Public Use
  Company Number: None

PATIENT
  Sex: Male
  Weight: 86.1834 kg

DRUGS (2)
  1. ARICEPT [Suspect]
     Indication: DEMENTIA
     Dosage: 1 10 MCG 1 DAILY
     Dates: start: 20091001
  2. ARICEPT [Suspect]
     Indication: DEMENTIA
     Dosage: 1 10 MCG 1 DAILY
     Dates: start: 20091201

REACTIONS (5)
  - ANGER [None]
  - EMOTIONAL DISTRESS [None]
  - IMPRISONMENT [None]
  - PERSONALITY CHANGE [None]
  - PHYSICAL ASSAULT [None]
